FAERS Safety Report 15587724 (Version 2)
Quarter: 2018Q4

REPORT INFORMATION
  Report Type: Spontaneous
  Country: JP (occurrence: JP)
  Receive Date: 20181105
  Receipt Date: 20181226
  Transmission Date: 20190205
  Serious: Yes (Hospitalization)
  Sender: FDA-Public Use
  Company Number: JP-BRACCO-2018JP05563

PATIENT
  Age: 63 Year
  Sex: Male

DRUGS (2)
  1. IOPAMIRON [Suspect]
     Active Substance: IOPAMIDOL
     Indication: COMPUTERISED TOMOGRAM
     Dosage: UNK, SINGLE
     Route: 040
     Dates: start: 20180613, end: 20180613
  2. IOMERON 350 SYRINGE [Suspect]
     Active Substance: IOMEPROL
     Indication: PERCUTANEOUS CORONARY INTERVENTION
     Dosage: UNK, SINGLE
     Dates: start: 20180703, end: 20180703

REACTIONS (2)
  - Acute generalised exanthematous pustulosis [Recovered/Resolved]
  - Sensitisation [Unknown]

NARRATIVE: CASE EVENT DATE: 20180703
